FAERS Safety Report 7518589-2 (Version None)
Quarter: 2011Q2

REPORT INFORMATION
  Report Type: 
  Country: None (occurrence: None)
  Receive Date: 20110602
  Receipt Date: 20110519
  Transmission Date: 20111010
  Serious: Yes (Hospitalization)
  Sender: FDA-Public Use
  Company Number: US-ENDO PHARMACEUTICALS INC.-PHEB20110005

PATIENT
  Age: 3 Year
  Sex: Male

DRUGS (1)
  1. PHENOBARBITAL TAB [Suspect]
     Route: 048

REACTIONS (2)
  - SOMNOLENCE [None]
  - DRUG LEVEL ABOVE THERAPEUTIC [None]
